FAERS Safety Report 17900703 (Version 1)
Quarter: 2020Q2

REPORT INFORMATION
  Report Type: Spontaneous
  Country: CO (occurrence: CO)
  Receive Date: 20200616
  Receipt Date: 20200616
  Transmission Date: 20200714
  Serious: Yes (Other)
  Sender: FDA-Public Use
  Company Number: CO-ROCHE-2623027

PATIENT
  Sex: Female

DRUGS (1)
  1. XOLAIR [Suspect]
     Active Substance: OMALIZUMAB
     Indication: RESPIRATORY DISORDER
     Route: 058

REACTIONS (2)
  - Asphyxia [Unknown]
  - Product use in unapproved indication [Unknown]
